FAERS Safety Report 8896961 (Version 1)
Quarter: 2012Q4

REPORT INFORMATION
  Report Type: 
  Country: US (occurrence: US)
  Receive Date: 20121108
  Receipt Date: 20121108
  Transmission Date: 20130627
  Serious: No
  Sender: FDA-Public Use
  Company Number: US-AMGEN-USASP2012029211

PATIENT
  Sex: Male

DRUGS (3)
  1. ENBREL [Suspect]
     Indication: ARTHROPATHY
     Dosage: 50 mg, qwk
  2. CLOBETASOL [Concomitant]
     Dosage: UNK
  3. COUMADIN                           /00014802/ [Concomitant]
     Dosage: UNK

REACTIONS (2)
  - Blood urine present [Unknown]
  - Oedema peripheral [Unknown]
